FAERS Safety Report 6896735-1 (Version None)
Quarter: 2010Q3

REPORT INFORMATION
  Report Type: 
  Country: None (occurrence: None)
  Receive Date: 20100802
  Receipt Date: 20070207
  Transmission Date: 20110219
  Serious: No
  Sender: FDA-Public Use
  Company Number: US-PFIZER INC-2007010584

PATIENT
  Sex: Male
  Weight: 118.4 kg

DRUGS (5)
  1. LYRICA [Suspect]
     Indication: NEUROPATHY PERIPHERAL
     Dosage: QD: EVERY DAY
  2. ATENOLOL [Concomitant]
  3. POTASSIUM [Concomitant]
  4. ACETYLSALICYLIC ACID SRT [Concomitant]
  5. CHONDROITIN/GLUCOSAMINE [Concomitant]

REACTIONS (5)
  - ARTHRALGIA [None]
  - BURNING SENSATION [None]
  - DRUG INEFFECTIVE [None]
  - PAIN [None]
  - SKIN WRINKLING [None]
